FAERS Safety Report 13942244 (Version 1)
Quarter: 2017Q3

REPORT INFORMATION
  Report Type: Spontaneous
  Country: US (occurrence: US)
  Receive Date: 20170907
  Receipt Date: 20170907
  Transmission Date: 20171127
  Serious: Yes (Hospitalization, Other)
  Sender: FDA-Public Use
  Company Number: US-HERITAGE PHARMACEUTICALS-2017HTG00253

PATIENT
  Age: 16 Year
  Sex: Female

DRUGS (11)
  1. AZITHROMYCIN ANHYDROUS. [Concomitant]
     Active Substance: AZITHROMYCIN ANHYDROUS
     Indication: MALARIA PROPHYLAXIS
     Dosage: UNK, 1X/DAY X 5 DAYS
     Route: 065
  2. RISPERIDONE. [Suspect]
     Active Substance: RISPERIDONE
     Indication: ANXIETY
     Route: 065
  3. DIPHENHYDRAMINE. [Suspect]
     Active Substance: DIPHENHYDRAMINE
     Indication: SLEEP DISORDER
     Route: 065
  4. LORAZEPAM. [Suspect]
     Active Substance: LORAZEPAM
     Indication: ANXIETY
  5. BENZTROPINE [Suspect]
     Active Substance: BENZTROPINE
     Indication: ANXIETY
     Route: 065
  6. LORAZEPAM. [Suspect]
     Active Substance: LORAZEPAM
     Indication: ABNORMAL BEHAVIOUR
     Route: 065
  7. FLUOXETINE [Suspect]
     Active Substance: FLUOXETINE HYDROCHLORIDE
     Indication: ANXIETY
     Route: 065
  8. OLANZAPINE. [Suspect]
     Active Substance: OLANZAPINE
     Indication: ABNORMAL BEHAVIOUR
     Dosage: 2.5 MG, 1X/DAY
     Route: 065
  9. OLANZAPINE. [Suspect]
     Active Substance: OLANZAPINE
     Dosage: 17.5 MG, 1X/DAY
  10. CLONAZEPAM. [Suspect]
     Active Substance: CLONAZEPAM
     Indication: ANXIETY
     Route: 065
  11. CHLOROQUINE. [Suspect]
     Active Substance: CHLOROQUINE
     Indication: MALARIA PROPHYLAXIS
     Dosage: 250 MG, 1X/WEEK
     Route: 065

REACTIONS (18)
  - Hallucination, auditory [Unknown]
  - Toxicity to various agents [Recovering/Resolving]
  - Suicidal ideation [Recovering/Resolving]
  - Amaurosis [Unknown]
  - Fatigue [Unknown]
  - Insomnia [Unknown]
  - Mydriasis [Not Recovered/Not Resolved]
  - Delusion [Unknown]
  - Facial paralysis [Unknown]
  - Toxic encephalopathy [Not Recovered/Not Resolved]
  - Anxiety [Unknown]
  - Catatonia [Unknown]
  - Confusional state [Unknown]
  - Persecutory delusion [Recovering/Resolving]
  - Dysphonia [Unknown]
  - Paranoia [Unknown]
  - Hallucination, visual [Unknown]
  - Areflexia [Unknown]
